FAERS Safety Report 17049246 (Version 1)
Quarter: 2019Q4

REPORT INFORMATION
  Report Type: Spontaneous
  Country: US (occurrence: US)
  Receive Date: 20191119
  Receipt Date: 20191119
  Transmission Date: 20200122
  Serious: Yes (Hospitalization)
  Sender: FDA-Public Use
  Company Number: US-MYLANLABS-2019M1110449

PATIENT
  Age: 58 Year
  Sex: Male

DRUGS (15)
  1. CYTARABINE. [Suspect]
     Active Substance: CYTARABINE
     Indication: METASTASES TO MENINGES
     Dosage: MATRIX REGIMEN, ON DAY 3 AND 4 EVERY 21 DAYS; SCHEDULED FOR FOUR CYCLES
     Route: 065
  2. ACYCLOVIR                          /00587301/ [Concomitant]
     Active Substance: ACYCLOVIR
     Indication: PROPHYLAXIS
     Dosage: UNK
     Route: 065
  3. CYTARABINE. [Suspect]
     Active Substance: CYTARABINE
     Indication: DIFFUSE LARGE B-CELL LYMPHOMA
  4. COTRIMOXAZOL [Concomitant]
     Active Substance: SULFAMETHOXAZOLE\TRIMETHOPRIM
     Indication: PROPHYLAXIS
     Dosage: UNK
     Route: 065
  5. LISINOPRIL. [Concomitant]
     Active Substance: LISINOPRIL
     Indication: PRODUCT USED FOR UNKNOWN INDICATION
     Dosage: UNK
     Route: 065
  6. PREDNISONE. [Concomitant]
     Active Substance: PREDNISONE
     Indication: RHEUMATOID ARTHRITIS
     Dosage: EVERY OTHER DAY
     Route: 065
  7. RITUXIMAB. [Suspect]
     Active Substance: RITUXIMAB
     Indication: DIFFUSE LARGE B-CELL LYMPHOMA
  8. METHOTREXATE. [Suspect]
     Active Substance: METHOTREXATE
     Indication: DIFFUSE LARGE B-CELL LYMPHOMA
  9. FOLINIC ACID [Suspect]
     Active Substance: LEUCOVORIN
     Indication: DIFFUSE LARGE B-CELL LYMPHOMA
  10. THIOTEPA. [Suspect]
     Active Substance: THIOTEPA
     Indication: DIFFUSE LARGE B-CELL LYMPHOMA
  11. METHOTREXATE. [Suspect]
     Active Substance: METHOTREXATE
     Indication: METASTASES TO MENINGES
     Dosage: MATRIX REGIMEN, HIGH-DOSE; ON DAY 2 EVERY 21 DAYS; SCHEDULED FOR FOUR CYCLES
     Route: 065
  12. THIOTEPA. [Suspect]
     Active Substance: THIOTEPA
     Indication: METASTASES TO MENINGES
     Dosage: MATRIX REGIMEN, ON DAY 5 EVERY 21 DAYS; SCHEDULED FOR FOUR CYCLES
     Route: 065
  13. FOLINIC ACID [Suspect]
     Active Substance: LEUCOVORIN
     Indication: METASTASES TO MENINGES
     Dosage: MATRIX REGIMEN; EVERY 21 DAYS; SCHEDULED FOR FOUR CYCLES
     Route: 065
  14. RITUXIMAB. [Suspect]
     Active Substance: RITUXIMAB
     Indication: METASTASES TO MENINGES
     Dosage: MATRIX REGIMEN, ON DAY 1 EVERY 21 DAYS; SCHEDULED FOR FOUR CYCLES
     Route: 065
  15. DEXAMETHASONE. [Concomitant]
     Active Substance: DEXAMETHASONE
     Indication: PRODUCT USED FOR UNKNOWN INDICATION
     Dosage: UNK
     Route: 065

REACTIONS (5)
  - Candida infection [Recovered/Resolved]
  - Streptococcal bacteraemia [Recovered/Resolved]
  - Sepsis [Recovered/Resolved]
  - Fungaemia [Recovered/Resolved]
  - Pancytopenia [Recovering/Resolving]
